FAERS Safety Report 9491373 (Version 2)
Quarter: 2013Q3

REPORT INFORMATION
  Report Type: Report from Study
  Country: JP (occurrence: JP)
  Receive Date: 20130830
  Receipt Date: 20130830
  Transmission Date: 20140515
  Serious: Yes (Hospitalization, Other)
  Sender: FDA-Public Use
  Company Number: PHHO2010JP14606

PATIENT
  Age: 62 Year
  Sex: Male
  Weight: 76 kg

DRUGS (10)
  1. ALISKIREN [Suspect]
     Indication: CARDIOVASCULAR DISORDER
     Route: 048
     Dates: start: 20080801, end: 20111225
  2. MICARDIS [Suspect]
     Dosage: 60 MG, UNK
     Route: 048
     Dates: start: 20080611, end: 20120920
  3. GLUCOBAY [Suspect]
     Indication: TYPE 2 DIABETES MELLITUS
     Dosage: 300 MG, UNK
     Route: 048
     Dates: start: 20090911, end: 20101008
  4. GLIMICRON [Suspect]
     Indication: TYPE 2 DIABETES MELLITUS
     Dosage: 10 MG, UNK
     Route: 048
     Dates: start: 20050803, end: 20101018
  5. PLAVIX [Suspect]
     Indication: PROPHYLAXIS
     Dosage: 75 MG, UNK
     Route: 048
     Dates: start: 20070228, end: 20120113
  6. ZYLORIC [Suspect]
     Dosage: 300 MG, UNK
     Route: 048
     Dates: start: 20080109
  7. ZYLORIC [Suspect]
     Dosage: 100 MG, DAILY
     Dates: start: 20100319, end: 20110815
  8. MELBIN [Concomitant]
     Indication: TYPE 2 DIABETES MELLITUS
     Dosage: 500 MG, UNK
     Route: 048
     Dates: start: 20070822
  9. SITAGLIPTIN PHOSPHATE [Concomitant]
     Indication: TYPE 2 DIABETES MELLITUS
     Dosage: 50 MG, UNK
     Route: 048
     Dates: start: 20100319
  10. EQUA [Concomitant]
     Indication: TYPE 2 DIABETES MELLITUS
     Dosage: 100 MG, UNK
     Route: 048
     Dates: start: 20100716, end: 20101018

REACTIONS (6)
  - Colon cancer [Recovered/Resolved]
  - Polyp [Recovering/Resolving]
  - Gastrointestinal disorder [Recovering/Resolving]
  - Adenoma benign [Recovering/Resolving]
  - Blood glucose abnormal [Unknown]
  - Glycosylated haemoglobin increased [Unknown]
